FAERS Safety Report 22353556 (Version 2)
Quarter: 2023Q2

REPORT INFORMATION
  Report Type: Report from Study
  Country: US (occurrence: US)
  Receive Date: 20230523
  Receipt Date: 20230621
  Transmission Date: 20230721
  Serious: Yes (Other)
  Sender: FDA-Public Use
  Company Number: US-ABBVIE-4765944

PATIENT
  Sex: Female
  Weight: 87 kg

DRUGS (7)
  1. RINVOQ [Suspect]
     Active Substance: UPADACITINIB
     Indication: Rheumatoid arthritis
     Dosage: FORM STRENGTH: 15 MILLIGRAM
     Route: 048
     Dates: start: 202302, end: 20230424
  2. RINVOQ [Suspect]
     Active Substance: UPADACITINIB
     Indication: Rheumatoid arthritis
     Dosage: FORM STRENGTH: 15  MILLIGRAM
     Route: 048
     Dates: start: 202305, end: 202306
  3. RINVOQ [Suspect]
     Active Substance: UPADACITINIB
     Indication: Rheumatoid arthritis
     Dosage: FORM STRENGTH: 15  MILLIGRAM
     Route: 048
     Dates: start: 202306
  4. RINVOQ [Suspect]
     Active Substance: UPADACITINIB
     Indication: Rheumatoid arthritis
     Dosage: FORM STRENGTH: 15  MILLIGRAM?START DATE 2023.
     Route: 048
     Dates: end: 202305
  5. SHINGRIX [Suspect]
     Active Substance: RECOMBINANT VARICELLA ZOSTER VIRUS (VZV) GLYCOPROTEIN E
     Indication: Herpes zoster immunisation
     Route: 030
     Dates: start: 20230415, end: 20230415
  6. SHINGRIX [Suspect]
     Active Substance: RECOMBINANT VARICELLA ZOSTER VIRUS (VZV) GLYCOPROTEIN E
     Indication: Herpes zoster immunisation
     Route: 030
     Dates: start: 202301, end: 202301
  7. EPINEPHRINE [Concomitant]
     Active Substance: EPINEPHRINE
     Indication: Hypersensitivity
     Dosage: PEN, AS NEEDED FOR EMERGENCY

REACTIONS (18)
  - Hypersensitivity [Recovered/Resolved]
  - Fatigue [Unknown]
  - Hyperhidrosis [Recovered/Resolved]
  - Pain [Unknown]
  - Paraesthesia [Not Recovered/Not Resolved]
  - Dyspnoea [Recovered/Resolved]
  - Dyspepsia [Recovered/Resolved]
  - Red cell distribution width increased [Unknown]
  - White blood cell count decreased [Unknown]
  - Arthralgia [Not Recovered/Not Resolved]
  - Chest pain [Recovered/Resolved]
  - Rash [Recovered/Resolved]
  - Joint noise [Not Recovered/Not Resolved]
  - Nasal congestion [Unknown]
  - Hypersensitivity [Unknown]
  - Paranasal sinus hypersecretion [Unknown]
  - Sinus congestion [Unknown]
  - Joint stiffness [Recovering/Resolving]

NARRATIVE: CASE EVENT DATE: 20230101
